FAERS Safety Report 9536866 (Version 1)
Quarter: 2013Q3

REPORT INFORMATION
  Report Type: Report from Study
  Country: LB (occurrence: LB)
  Receive Date: 20130919
  Receipt Date: 20130919
  Transmission Date: 20140515
  Serious: Yes (Life-Threatening)
  Sender: FDA-Public Use
  Company Number: LB-SANOFI-AVENTIS-2013SA091901

PATIENT
  Age: 55 Year
  Sex: Female

DRUGS (6)
  1. LANTUS SOLOSTAR [Suspect]
     Indication: DIABETES MELLITUS
     Dosage: DOSE:20 UNIT(S)
     Route: 058
     Dates: start: 2012, end: 201309
  2. SOLOSTAR [Concomitant]
     Dates: start: 2012, end: 201309
  3. SIOFOR [Concomitant]
     Indication: DIABETES MELLITUS
     Route: 048
     Dates: start: 201303
  4. AMARYL [Concomitant]
     Indication: DIABETES MELLITUS
     Route: 048
  5. CONCOR [Concomitant]
     Indication: HYPERTENSION
     Route: 048
  6. TWYNSTA [Concomitant]
     Indication: HYPERTENSION
     Route: 048

REACTIONS (2)
  - Loss of consciousness [Recovered/Resolved]
  - Asthenia [Recovered/Resolved]
